FAERS Safety Report 6436629-9 (Version None)
Quarter: 2009Q4

REPORT INFORMATION
  Report Type: 
  Country: None (occurrence: None)
  Receive Date: 20091111
  Receipt Date: 20091109
  Transmission Date: 20100525
  Serious: No
  Sender: FDA-Public Use
  Company Number: US-B.I. PHARMACEUTICALS,INC./RIDGEFIELD-2009-BP-12569BP

PATIENT
  Sex: Female

DRUGS (4)
  1. SPIRIVA [Suspect]
     Indication: PULMONARY FIBROSIS
     Dosage: 18 MCG
     Route: 055
     Dates: start: 20090301
  2. SPIRIVA [Suspect]
     Indication: CHRONIC OBSTRUCTIVE PULMONARY DISEASE
  3. SPIRIVA [Suspect]
     Indication: LUNG DISORDER
  4. ALBUTEROL [Concomitant]
     Indication: PULMONARY FIBROSIS
     Route: 055
     Dates: start: 20090301

REACTIONS (4)
  - COUGH [None]
  - FOREIGN BODY [None]
  - RETCHING [None]
  - VOMITING [None]
